FAERS Safety Report 21408601 (Version 1)
Quarter: 2022Q4

REPORT INFORMATION
  Report Type: Spontaneous
  Country: CN (occurrence: None)
  Receive Date: 20221004
  Receipt Date: 20221004
  Transmission Date: 20230112
  Serious: Yes (Other)
  Sender: FDA-Public Use
  Company Number: 2022A331356

PATIENT
  Age: 49 Year
  Sex: Female

DRUGS (3)
  1. GEFITINIB [Suspect]
     Active Substance: GEFITINIB
     Indication: Adenosquamous cell lung cancer stage IV
     Route: 048
  2. OSIMERTINIB [Suspect]
     Active Substance: OSIMERTINIB
     Indication: Adenosquamous cell lung cancer stage IV
     Route: 048
  3. PEMETREXED [Concomitant]
     Active Substance: PEMETREXED
     Indication: Adenosquamous cell lung cancer stage IV
     Dosage: 500 MG/M2 EVERY 3-4 WEEKS

REACTIONS (7)
  - Malignant neoplasm progression [Recovering/Resolving]
  - Haematotoxicity [Unknown]
  - Cough [Unknown]
  - Haemoptysis [Unknown]
  - Rash [Unknown]
  - Anaemia [Unknown]
  - Off label use [Unknown]
